FAERS Safety Report 12202703 (Version 2)
Quarter: 2016Q2

REPORT INFORMATION
  Report Type: Spontaneous
  Country: None (occurrence: US)
  Receive Date: 20160322
  Receipt Date: 20160412
  Transmission Date: 20160815
  Serious: No
  Sender: FDA-Public Use
  Company Number: US-MATRIXX INITIATIVES, INC.-1049450

PATIENT
  Age: 94 Year
  Sex: Male

DRUGS (2)
  1. CEFTIN [Concomitant]
     Active Substance: CEFUROXIME AXETIL
  2. ZICAM COLD REMEDY [Suspect]
     Active Substance: ZINC ACETATE\ZINC GLUCONATE
     Indication: NASOPHARYNGITIS
     Route: 048
     Dates: start: 20160312, end: 20160312

REACTIONS (1)
  - Ageusia [Recovered/Resolved]
